FAERS Safety Report 4840103-0 (Version None)
Quarter: 2005Q4

REPORT INFORMATION
  Report Type: 
  Country: None (occurrence: None)
  Receive Date: 20051125
  Receipt Date: 20051112
  Transmission Date: 20060501
  Serious: Yes (Other)
  Sender: FDA-Public Use
  Company Number: 2005155564

PATIENT
  Age: 3 Month
  Sex: Female
  Weight: 14 kg

DRUGS (1)
  1. BENADRYL [Suspect]
     Indication: POISONING DELIBERATE
     Dosage: DAILY, 5  DAYS A WEEK, ORAL
     Route: 048
     Dates: start: 20050801, end: 20051005

REACTIONS (3)
  - DRUG LEVEL ABOVE THERAPEUTIC [None]
  - LOSS OF CONSCIOUSNESS [None]
  - VICTIM OF ABUSE [None]
